FAERS Safety Report 4514539-1 (Version None)
Quarter: 2004Q4

REPORT INFORMATION
  Report Type: 
  Country: None (occurrence: None)
  Receive Date: 20041126
  Receipt Date: 20041118
  Transmission Date: 20050328
  Serious: Yes (Hospitalization)
  Sender: FDA-Public Use
  Company Number: STA-AE-04-MTX-585

PATIENT
  Age: 68 Year
  Sex: Male

DRUGS (8)
  1. RHEUMATREX [Suspect]
     Indication: RHEUMATOID ARTHRITIS
     Dosage: 4 MG 1 X PER 1 WK, ORAL
     Route: 048
     Dates: start: 20031201, end: 20040701
  2. RHEUMATREX [Suspect]
     Dosage: 6 MG 1 X PER 1 WK
     Dates: start: 20040701, end: 20040825
  3. PREDNISOLONE [Concomitant]
  4. ISOSORBIDE DINITRATE [Concomitant]
  5. GASTER (FAMOTIDINE) [Concomitant]
  6. ALENDRONATE SODIUM [Concomitant]
  7. ATELEC (CILNIDIPINE) [Concomitant]
  8. FLURBIPROFEN [Concomitant]

REACTIONS (8)
  - BONE MARROW DEPRESSION [None]
  - C-REACTIVE PROTEIN INCREASED [None]
  - HERPES ZOSTER [None]
  - PLATELET COUNT INCREASED [None]
  - PNEUMONIA BACTERIAL [None]
  - RESPIRATORY FAILURE [None]
  - STEROID WITHDRAWAL SYNDROME [None]
  - WHITE BLOOD CELL COUNT INCREASED [None]
